FAERS Safety Report 17861097 (Version 2)
Quarter: 2021Q2

REPORT INFORMATION
  Report Type: Report from Study
  Country: AU (occurrence: AU)
  Receive Date: 20200604
  Receipt Date: 20210512
  Transmission Date: 20210717
  Serious: Yes (Other)
  Sender: FDA-Public Use
  Company Number: AU-REGENERON PHARMACEUTICALS, INC.-2020-40999

PATIENT

DRUGS (3)
  1. EYLEA [Suspect]
     Active Substance: AFLIBERCEPT
     Indication: DIABETIC RETINAL OEDEMA
     Dosage: THREE INJECTIONS, RIGHT EYE
     Route: 031
     Dates: start: 20200226
  2. EYLEA [Suspect]
     Active Substance: AFLIBERCEPT
     Dosage: LEFT EYE
     Route: 031
     Dates: start: 20200528
  3. EYLEA [Suspect]
     Active Substance: AFLIBERCEPT
     Dosage: UNK, INTRAVITREAL INJECTION TO BOTH EYES; TOTAL NUMBER OF DOSES UNK; ^LONGEST STRETCH WITH 2 MONTHS
     Route: 031
     Dates: start: 20200226

REACTIONS (5)
  - Blindness transient [Recovered/Resolved]
  - Lacrimation increased [Recovered/Resolved]
  - Visual impairment [Not Recovered/Not Resolved]
  - Neovascular age-related macular degeneration [Not Recovered/Not Resolved]
  - Headache [Recovered/Resolved]

NARRATIVE: CASE EVENT DATE: 2020
